FAERS Safety Report 8606422-7 (Version None)
Quarter: 2012Q3

REPORT INFORMATION
  Report Type: 
  Country: None (occurrence: None)
  Receive Date: 20120820
  Receipt Date: 20120810
  Transmission Date: 20120928
  Serious: Yes (Hospitalization, Other)
  Sender: FDA-Public Use
  Company Number: US-ROCHE-1061708

PATIENT
  Sex: Female
  Weight: 54.48 kg

DRUGS (3)
  1. ACCUTANE [Suspect]
     Indication: ACNE
     Dates: start: 20010409, end: 20010816
  2. DEPO-PROVERA [Concomitant]
  3. ACCUTANE [Suspect]
     Indication: FURUNCLE
     Dates: end: 20010916

REACTIONS (7)
  - MENTAL DISORDER [None]
  - CROHN'S DISEASE [None]
  - EYE IRRITATION [None]
  - INFLAMMATORY BOWEL DISEASE [None]
  - DRY SKIN [None]
  - DEPRESSION [None]
  - INTESTINAL OBSTRUCTION [None]
